FAERS Safety Report 12802836 (Version 4)
Quarter: 2017Q3

REPORT INFORMATION
  Report Type: Spontaneous
  Country: JP (occurrence: JP)
  Receive Date: 20161003
  Receipt Date: 20170925
  Transmission Date: 20171127
  Serious: Yes (Hospitalization)
  Sender: FDA-Public Use
  Company Number: JP-GLAXOSMITHKLINE-JP2016JPN141918

PATIENT
  Age: 23 Year
  Sex: Male

DRUGS (10)
  1. LAMICTAL [Suspect]
     Active Substance: LAMOTRIGINE
     Dosage: UNK UNK, QID
     Route: 048
     Dates: end: 20161005
  2. EPILEO PETIT MAL [Concomitant]
     Dosage: 0.6 G, 1D
  3. LAMICTAL [Suspect]
     Active Substance: LAMOTRIGINE
     Dosage: 50 MG, QID
     Route: 048
     Dates: start: 20160920
  4. MINO-ALEVIATIN [Concomitant]
  5. LAMICTAL [Suspect]
     Active Substance: LAMOTRIGINE
     Indication: EPILEPSY
     Dosage: 200 MG, 1D
     Route: 048
  6. ALEVIATIN [Concomitant]
     Active Substance: PHENYTOIN SODIUM
     Indication: EPILEPSY
     Dosage: 67.5 MG, QID
  7. NEOMALLERMIN [Concomitant]
     Active Substance: DEXCHLORPHENIRAMINE MALEATE
     Dosage: 2 MG, TID
  8. E KEPPRA [Concomitant]
     Active Substance: LEVETIRACETAM
     Indication: EPILEPSY
     Dosage: 500 MG, QID
  9. LAMICTAL [Suspect]
     Active Substance: LAMOTRIGINE
     Dosage: 200 MG, QID
     Route: 048
     Dates: start: 20160918, end: 20160920
  10. VALPROATE SODIUM. [Concomitant]
     Active Substance: VALPROATE SODIUM
     Indication: EPILEPSY
     Dosage: 250 MG, QID

REACTIONS (7)
  - Incorrect dose administered [Unknown]
  - Generalised erythema [Recovered/Resolved]
  - Hypophagia [Recovering/Resolving]
  - Accidental overdose [Unknown]
  - Rash [Recovered/Resolved]
  - Drug dispensing error [Unknown]
  - Malaise [Recovering/Resolving]

NARRATIVE: CASE EVENT DATE: 20160918
